FAERS Safety Report 6696663-0 (Version None)
Quarter: 2010Q2

REPORT INFORMATION
  Report Type: 
  Country: None (occurrence: None)
  Receive Date: 20100421
  Receipt Date: 20100112
  Transmission Date: 20101027
  Serious: No
  Sender: FDA-Public Use
  Company Number: US-000040

PATIENT
  Sex: Male
  Weight: 90.7194 kg

DRUGS (1)
  1. KUVAN [Suspect]
     Dosage: ORAL
     Route: 048
     Dates: start: 20090101

REACTIONS (4)
  - ANGER [None]
  - BLOOD PRESSURE INCREASED [None]
  - IRRITABILITY [None]
  - TENSION [None]
